FAERS Safety Report 4828171-3 (Version None)
Quarter: 2005Q4

REPORT INFORMATION
  Report Type: 
  Country: None (occurrence: None)
  Receive Date: 20051115
  Receipt Date: 20051025
  Transmission Date: 20060501
  Serious: Yes (Hospitalization, Disabling)
  Sender: FDA-Public Use
  Company Number: US-GLAXOSMITHKLINE-A0579553A

PATIENT
  Age: 35 Year
  Sex: Female

DRUGS (2)
  1. RELAFEN [Suspect]
     Indication: PAIN
     Dosage: 750MG TWICE PER DAY
     Route: 048
     Dates: start: 20051023, end: 20051024
  2. ACID REFLUX MED. [Concomitant]

REACTIONS (1)
  - MYOCLONUS [None]
